FAERS Safety Report 8826599 (Version 1)
Quarter: 2012Q4

REPORT INFORMATION
  Report Type: 
  Country: CA (occurrence: CA)
  Receive Date: 20121007
  Receipt Date: 20121007
  Transmission Date: 20130627
  Serious: Yes (Other)
  Sender: FDA-Public Use
  Company Number: PHHY2008CA044344

PATIENT

DRUGS (1)
  1. SANDOSTATIN LAR [Suspect]
     Dates: start: 20040502

REACTIONS (2)
  - Blood pressure diastolic decreased [Unknown]
  - Blood pressure systolic increased [Unknown]
